FAERS Safety Report 20460180 (Version 1)
Quarter: 2022Q1

REPORT INFORMATION
  Report Type: Spontaneous
  Country: JP (occurrence: JP)
  Receive Date: 20220211
  Receipt Date: 20220211
  Transmission Date: 20220423
  Serious: Yes (Other)
  Sender: FDA-Public Use
  Company Number: JP-LUPIN PHARMACEUTICALS INC.-2022-01809

PATIENT
  Age: 53 Year
  Sex: Female

DRUGS (1)
  1. VANCOMYCIN [Suspect]
     Active Substance: VANCOMYCIN
     Indication: Haematological malignancy
     Dosage: UNK
     Route: 065

REACTIONS (1)
  - Acute kidney injury [Unknown]
